FAERS Safety Report 23267031 (Version 1)
Quarter: 2023Q4

REPORT INFORMATION
  Report Type: Spontaneous
  Country: CZ (occurrence: CZ)
  Receive Date: 20231206
  Receipt Date: 20231206
  Transmission Date: 20240110
  Serious: Yes (Hospitalization)
  Sender: FDA-Public Use
  Company Number: CZ-AstraZeneca-2023A243874

PATIENT
  Age: 27430 Day
  Sex: Female

DRUGS (8)
  1. ANASTROZOLE [Suspect]
     Active Substance: ANASTROZOLE
     Indication: Breast cancer
     Dosage: 1 MILLIGRAM, QD
     Route: 048
     Dates: start: 20230515, end: 20231001
  2. ANASTROZOLE [Suspect]
     Active Substance: ANASTROZOLE
     Dosage: 1 MILLIGRAM, QD
     Route: 048
     Dates: start: 20231002
  3. CAMIZESTRANT [Suspect]
     Active Substance: CAMIZESTRANT
     Indication: Breast cancer
     Dosage: 75 MILLIGRAM, QD
     Route: 048
     Dates: start: 20230515, end: 20231001
  4. CAMIZESTRANT [Suspect]
     Active Substance: CAMIZESTRANT
     Dosage: 75 MILLIGRAM, QD
     Route: 048
     Dates: start: 20231002
  5. PALBOCICLIB [Suspect]
     Active Substance: PALBOCICLIB
     Indication: Breast cancer
     Dosage: 125 MILLIGRAM, QD
     Route: 048
     Dates: start: 20230515, end: 20230925
  6. PALBOCICLIB [Suspect]
     Active Substance: PALBOCICLIB
     Dosage: 125 MILLIGRAM, QD
     Route: 048
     Dates: start: 20231002
  7. MEROPENEM [Suspect]
     Active Substance: MEROPENEM
     Indication: Breast cancer
     Dosage: UNK
     Route: 065
  8. CEFTRIAXONE [Suspect]
     Active Substance: CEFTRIAXONE\CEFTRIAXONE SODIUM
     Indication: Breast cancer
     Dosage: UNK
     Route: 065

REACTIONS (1)
  - Hydronephrosis [Recovered/Resolved]

NARRATIVE: CASE EVENT DATE: 20231020
